FAERS Safety Report 8107564 (Version 6)
Quarter: 2013Q1

REPORT INFORMATION
  Report Type: Spontaneous
  Country: US (occurrence: US)
  Receive Date: 20110825
  Receipt Date: 20130124
  Transmission Date: 20140127
  Serious: Yes (Hospitalization, Other)
  Sender: FDA-Public Use
  Company Number: US-ASTRAZENECA-2010SE51860

PATIENT
  Age: 50 Year
  Sex: Male

DRUGS (18)
  1. NEXIUM [Suspect]
     Indication: PERFORATED ULCER
     Route: 048
  2. PRILOSEC OTC [Suspect]
     Route: 048
  3. LISINOPRIL [Concomitant]
     Route: 048
  4. ATENOLOL [Concomitant]
     Route: 048
  5. PRILOSEC [Concomitant]
     Route: 048
  6. LIPITOR [Concomitant]
  7. ASPIRIN [Concomitant]
  8. COREG [Concomitant]
  9. NITROGLYCERIN [Concomitant]
     Dosage: AS NEEDED
     Route: 060
  10. NICODERM [Concomitant]
  11. ECOTRIN [Concomitant]
  12. VICODIN [Concomitant]
  13. PERCOCET [Concomitant]
     Indication: PAIN
     Dosage: 5/325 ONE TO TWO EVERY FOUR HOURS AS NEEDED
     Route: 048
  14. ZANTAC [Concomitant]
  15. ANTIBIOTICS [Concomitant]
  16. PEPTO BISMOL [Concomitant]
  17. CARVEDILOL [Concomitant]
  18. MORPHINE [Concomitant]
     Dosage: PRN

REACTIONS (23)
  - Electric shock [Unknown]
  - Acute coronary syndrome [Unknown]
  - Acute myocardial infarction [Unknown]
  - Coronary artery disease [Unknown]
  - Peptic ulcer perforation [Unknown]
  - Pneumonia [Unknown]
  - Lung neoplasm malignant [Unknown]
  - Angina unstable [Unknown]
  - Hyperlipidaemia [Unknown]
  - Hypertension [Unknown]
  - Flank pain [Unknown]
  - Tobacco abuse [Unknown]
  - Disturbance in attention [Unknown]
  - Procedural pain [Unknown]
  - Condition aggravated [Unknown]
  - Feeling abnormal [Unknown]
  - Feeling abnormal [Unknown]
  - Hypokalaemia [Unknown]
  - Dyspepsia [Unknown]
  - Abdominal pain upper [Unknown]
  - Intentional drug misuse [Unknown]
  - Drug dose omission [Unknown]
  - Drug ineffective [Unknown]
